FAERS Safety Report 9352215 (Version 3)
Quarter: 2014Q3

REPORT INFORMATION
  Report Type: Spontaneous
  Country: US (occurrence: US)
  Receive Date: 20130617
  Receipt Date: 20140824
  Transmission Date: 20150326
  Serious: Yes (Hospitalization, Disabling)
  Sender: FDA-Public Use
  Company Number: US-009507513-1306USA006671

PATIENT
  Sex: Female
  Weight: 108.48 kg

DRUGS (1)
  1. NUVARING [Suspect]
     Active Substance: ETHINYL ESTRADIOL\ETONOGESTREL
     Indication: CONTRACEPTION
     Dosage: 0.12 / 0.015MG / 24HOURS VAGINAL RING, 1 EVERY 3 WEEKS THEN REMOVE FOR 1 WEEK
     Route: 067
     Dates: start: 20070203, end: 200811

REACTIONS (7)
  - Deep vein thrombosis [Unknown]
  - Drug hypersensitivity [Unknown]
  - Dehydration [Unknown]
  - Bradycardia [Unknown]
  - Thrombophlebitis superficial [Unknown]
  - Anxiety [Unknown]
  - Arthropod sting [Unknown]

NARRATIVE: CASE EVENT DATE: 20070802
